FAERS Safety Report 4401271-8 (Version None)
Quarter: 2004Q3

REPORT INFORMATION
  Report Type: 
  Country: None (occurrence: None)
  Receive Date: 20040907
  Receipt Date: 20040202
  Transmission Date: 20050211
  Serious: No
  Sender: FDA-Public Use
  Company Number: US-BRISTOL-MYERS SQUIBB COMPANY-12493698

PATIENT
  Age: 59 Year
  Sex: Female
  Weight: 55 kg

DRUGS (2)
  1. COUMADIN [Suspect]
     Indication: MITRAL VALVE REPLACEMENT
     Dosage: CURRENT REGIMEN: 4 MG 5 DAYS/WEEK, 5 MG 2 DAYS/WEEK
     Route: 048
     Dates: start: 19780101
  2. TYLENOL W/ CODEINE NO. 2 [Concomitant]

REACTIONS (4)
  - ARTHROPATHY [None]
  - FEELING COLD [None]
  - MUSCULOSKELETAL STIFFNESS [None]
  - TEMPERATURE INTOLERANCE [None]
